FAERS Safety Report 19930846 (Version 1)
Quarter: 2021Q4

REPORT INFORMATION
  Report Type: Spontaneous
  Country: GB (occurrence: GB)
  Receive Date: 20211007
  Receipt Date: 20211007
  Transmission Date: 20220303
  Serious: Yes (Hospitalization, Disabling)
  Sender: FDA-Public Use
  Company Number: GB-ABBVIE-21K-167-4109019-00

PATIENT
  Age: 15 Year
  Sex: Female

DRUGS (1)
  1. EPILIM [Suspect]
     Active Substance: VALPROATE SODIUM
     Indication: Product used for unknown indication
     Dosage: 500MG TWICE IN A DAY AND 750MG ONCE IN A DAY
     Route: 048

REACTIONS (2)
  - Hepatic function abnormal [Not Recovered/Not Resolved]
  - Jaundice cholestatic [Unknown]
